FAERS Safety Report 20868383 (Version 1)
Quarter: 2022Q2

REPORT INFORMATION
  Report Type: Spontaneous
  Country: US (occurrence: None)
  Receive Date: 20220524
  Receipt Date: 20220524
  Transmission Date: 20220721
  Serious: Yes (Disabling)
  Sender: FDA-Public Use
  Company Number: None

PATIENT
  Age: 63 Year
  Sex: Female
  Weight: 136.08 kg

DRUGS (9)
  1. DAPAGLIFLOZIN [Suspect]
     Active Substance: DAPAGLIFLOZIN
     Indication: Renal disorder prophylaxis
     Dosage: FREQUENCY : DAILY;?
     Route: 048
     Dates: start: 202105, end: 202110
  2. LEVEMIR [Concomitant]
  3. APIDRA [Concomitant]
     Active Substance: INSULIN GLULISINE
  4. METFORMIN [Concomitant]
     Active Substance: METFORMIN HYDROCHLORIDE
  5. VALSARTAN [Concomitant]
     Active Substance: VALSARTAN
  6. TOPAMAX [Concomitant]
     Active Substance: TOPIRAMATE
  7. LIPITOR [Concomitant]
     Active Substance: ATORVASTATIN CALCIUM
  8. METOPROLOL [Concomitant]
  9. FISH OIL [Concomitant]

REACTIONS (8)
  - Glomerular filtration rate decreased [None]
  - Blood creatinine increased [None]
  - Carbon dioxide abnormal [None]
  - Flank pain [None]
  - Dysuria [None]
  - Urinary tract infection [None]
  - Pneumonia [None]
  - Contraindicated product prescribed [None]

NARRATIVE: CASE EVENT DATE: 20211001
